FAERS Safety Report 7268770-5 (Version None)
Quarter: 2011Q1

REPORT INFORMATION
  Report Type: 
  Country: None (occurrence: None)
  Receive Date: 20110201
  Receipt Date: 20110119
  Transmission Date: 20110831
  Serious: Yes (Other)
  Sender: FDA-Public Use
  Company Number: PHHY2011US04902

PATIENT
  Sex: Male

DRUGS (7)
  1. ATENOLOL [Concomitant]
  2. PREDNISOLONE [Concomitant]
  3. ASPIRIN [Concomitant]
  4. CRESTOR [Concomitant]
  5. AFINITOR [Suspect]
     Dosage: UNK
     Dates: start: 20110112
  6. PLAVIX [Concomitant]
     Dosage: UNK
  7. ASPIRIN [Concomitant]

REACTIONS (2)
  - CORONARY ARTERY OCCLUSION [None]
  - MYOCARDIAL ISCHAEMIA [None]
